FAERS Safety Report 15155247 (Version 1)
Quarter: 2018Q3

REPORT INFORMATION
  Report Type: Report from Study
  Country: US (occurrence: US)
  Receive Date: 20180717
  Receipt Date: 20180717
  Transmission Date: 20181010
  Serious: Yes (Other)
  Sender: FDA-Public Use
  Company Number: US-SA-2018SA183782

PATIENT
  Age: 67 Year
  Sex: Female

DRUGS (1)
  1. INSULIN GLARGINE [Suspect]
     Active Substance: INSULIN GLARGINE
     Indication: TYPE 2 DIABETES MELLITUS
     Dosage: 64 DF, QD
     Route: 058

REACTIONS (3)
  - Blood glucose fluctuation [Not Recovered/Not Resolved]
  - Neuropathy peripheral [Unknown]
  - Arthritis [Unknown]

NARRATIVE: CASE EVENT DATE: 20180703
